FAERS Safety Report 7801832-X (Version None)
Quarter: 2011Q4

REPORT INFORMATION
  Report Type: 
  Country: None (occurrence: None)
  Receive Date: 20111007
  Receipt Date: 20111004
  Transmission Date: 20120403
  Serious: Yes (Other)
  Sender: FDA-Public Use
  Company Number: CA-PFIZER INC-2011236699

PATIENT
  Age: 57 Year
  Sex: Male

DRUGS (2)
  1. VARENICLINE TARTRATE [Suspect]
     Indication: SMOKING CESSATION THERAPY
     Dosage: 0.5 MG, DAILY
     Route: 048
     Dates: start: 20110101, end: 20110101
  2. SALBUTAMOL [Concomitant]
     Indication: ASTHMA
     Dosage: 4 TIMES PER DAY AS NEEDED
     Route: 055
     Dates: start: 20110801

REACTIONS (2)
  - BALANITIS [None]
  - PENILE EXFOLIATION [None]
